FAERS Safety Report 7105112-X (Version None)
Quarter: 2010Q4

REPORT INFORMATION
  Report Type: 
  Country: None (occurrence: None)
  Receive Date: 20101110
  Receipt Date: 20101026
  Transmission Date: 20110411
  Serious: Yes (Hospitalization)
  Sender: FDA-Public Use
  Company Number: 021188

PATIENT
  Sex: Female
  Weight: 43.1 kg

DRUGS (4)
  1. CIMZIA [Suspect]
     Indication: CROHN'S DISEASE
     Dosage: TWO SHOTS  SUBCUTANEOUS
     Route: 058
     Dates: start: 20100801
  2. PENTASA [Concomitant]
  3. PREDNISONE [Concomitant]
  4. CELEXA [Concomitant]

REACTIONS (7)
  - APHTHOUS STOMATITIS [None]
  - CONDITION AGGRAVATED [None]
  - CROHN'S DISEASE [None]
  - DECREASED APPETITE [None]
  - DRUG INEFFECTIVE [None]
  - FATIGUE [None]
  - WEIGHT DECREASED [None]
